FAERS Safety Report 21043411 (Version 1)
Quarter: 2022Q3

REPORT INFORMATION
  Report Type: Spontaneous
  Country: CA (occurrence: CA)
  Receive Date: 20220705
  Receipt Date: 20220705
  Transmission Date: 20221027
  Serious: Yes (Hospitalization)
  Sender: FDA-Public Use
  Company Number: CA-PFIZER INC-202200924597

PATIENT
  Age: 64 Year
  Sex: Male

DRUGS (1)
  1. SIROLIMUS [Interacting]
     Active Substance: SIROLIMUS
     Indication: Lung transplant
     Dosage: UNK

REACTIONS (4)
  - Drug interaction [Unknown]
  - Leukopenia [Unknown]
  - Neutropenia [Unknown]
  - Off label use [Unknown]
